FAERS Safety Report 4327746-8 (Version None)
Quarter: 2004Q1

REPORT INFORMATION
  Report Type: 
  Country: None (occurrence: None)
  Receive Date: 20040325
  Receipt Date: 20040315
  Transmission Date: 20041129
  Serious: Yes (Other)
  Sender: FDA-Public Use
  Company Number: 30018586-03D10G40-1

PATIENT
  Age: 68 Year

DRUGS (3)
  1. EXTRANEAL [Suspect]
     Indication: PERITONEAL DIALYSIS
     Dosage: 7.5% ICODEXTRIN 2L QD IP
     Route: 033
     Dates: start: 20030820, end: 20040115
  2. DIANEAL  1.5% [Concomitant]
  3. PHYSIONEAL [Concomitant]

REACTIONS (1)
  - PERITONITIS [None]
